FAERS Safety Report 7126538-4 (Version None)
Quarter: 2010Q4

REPORT INFORMATION
  Report Type: 
  Country: None (occurrence: None)
  Receive Date: 20101129
  Receipt Date: 20101115
  Transmission Date: 20110411
  Serious: Yes (Hospitalization, Other)
  Sender: FDA-Public Use
  Company Number: DE-MYLANLABS-2010S1016682

PATIENT
  Age: 57 Year
  Sex: Female
  Weight: 105 kg

DRUGS (8)
  1. DICLOFENAC SODIUM [Suspect]
     Indication: BONE PAIN
     Route: 048
     Dates: start: 20041101, end: 20100525
  2. RAMIPRIL [Suspect]
     Indication: HYPERTENSION
     Route: 048
     Dates: start: 20080101, end: 20100528
  3. TRAMADOL HCL [Concomitant]
     Indication: PRODUCT USED FOR UNKNOWN INDICATION
     Route: 048
     Dates: start: 20070801, end: 20100528
  4. METFORMIN [Concomitant]
     Indication: TYPE 2 DIABETES MELLITUS
     Route: 048
     Dates: start: 20080101, end: 20100529
  5. GABAPENTIN [Concomitant]
     Indication: NEUROBORRELIOSIS
     Route: 048
     Dates: start: 20070101, end: 20100525
  6. MADOPAR [Concomitant]
     Indication: RESTLESS LEGS SYNDROME
     Dates: start: 20060101, end: 20100525
  7. MADOPAR [Concomitant]
     Dates: start: 20060101, end: 20100525
  8. VIANI [Concomitant]
     Indication: ASTHMA
     Dates: start: 20050101, end: 20100525

REACTIONS (2)
  - HYPERKALAEMIA [None]
  - RENAL FAILURE ACUTE [None]
